FAERS Safety Report 4527554-9 (Version None)
Quarter: 2004Q4

REPORT INFORMATION
  Report Type: 
  Country: None (occurrence: None)
  Receive Date: 20041215
  Receipt Date: 20040920
  Transmission Date: 20050328
  Serious: Yes (Other)
  Sender: FDA-Public Use
  Company Number: US-BRISTOL-MYERS SQUIBB COMPANY-12794376

PATIENT

DRUGS (6)
  1. CYCLOPHOSPHAMIDE [Suspect]
     Indication: LYMPHOMA
     Dosage: TOTAL DOSE: 7200 MG/M2
     Route: 042
  2. CARBOPLATIN [Suspect]
     Indication: LYMPHOMA
     Dosage: TOTAL DOSE: 1600 MG/M2
     Route: 042
  3. ETOPOSIDE [Suspect]
     Indication: LYMPHOMA
     Dosage: TOTAL DOSE: 1600 MG/M2
     Route: 042
  4. NEOSPORIN G.U. [Concomitant]
  5. MESNA [Concomitant]
     Route: 042
  6. CIPROFLOXACIN [Concomitant]

REACTIONS (1)
  - VENTRICULAR DYSFUNCTION [None]
